FAERS Safety Report 7908953-1 (Version None)
Quarter: 2011Q4

REPORT INFORMATION
  Report Type: 
  Country: None (occurrence: None)
  Receive Date: 20111110
  Receipt Date: 20111110
  Transmission Date: 20120403
  Serious: Yes (Hospitalization)
  Sender: FDA-Public Use
  Company Number: None

PATIENT
  Sex: Female
  Weight: 97.6 kg

DRUGS (2)
  1. GEMCITABINE HYDROCHLORIDE [Suspect]
     Dosage: 2110 MG
  2. CISPLATIN [Suspect]
     Dosage: 147 MG

REACTIONS (2)
  - BLOOD POTASSIUM DECREASED [None]
  - DEHYDRATION [None]
